FAERS Safety Report 8298574-6 (Version None)
Quarter: 2012Q2

REPORT INFORMATION
  Report Type: 
  Country: None (occurrence: None)
  Receive Date: 20120419
  Receipt Date: 20110718
  Transmission Date: 20120825
  Serious: Yes (Other)
  Sender: FDA-Public Use
  Company Number: US-ABBOTT-11P-163-0840100-00

PATIENT
  Sex: Female
  Weight: 32.234 kg

DRUGS (4)
  1. CLONAZEPAM [Concomitant]
     Indication: EPILEPSY
  2. LUPRON DEPOT-PED [Suspect]
     Indication: PRECOCIOUS PUBERTY
     Dates: start: 20100501
  3. TRILEPTAL [Concomitant]
     Indication: EPILEPSY
  4. KEPPRA [Concomitant]
     Indication: EPILEPSY

REACTIONS (1)
  - CONVULSION [None]
